FAERS Safety Report 5842173-X (Version None)
Quarter: 2008Q3

REPORT INFORMATION
  Report Type: 
  Country: None (occurrence: None)
  Receive Date: 20080812
  Receipt Date: 20080731
  Transmission Date: 20090109
  Serious: Yes (Other)
  Sender: FDA-Public Use
  Company Number: GB-ROCHE-579032

PATIENT
  Sex: Female
  Weight: 109.8 kg

DRUGS (3)
  1. ORLISTAT [Suspect]
     Indication: OBESITY
     Route: 048
     Dates: end: 20080717
  2. ORLISTAT [Suspect]
     Route: 048
  3. METFORMIN HCL [Suspect]
     Route: 048
     Dates: start: 20080717, end: 20080717

REACTIONS (3)
  - DIABETES MELLITUS [None]
  - DIARRHOEA [None]
  - VOMITING [None]
